FAERS Safety Report 20665224 (Version 7)
Quarter: 2022Q3

REPORT INFORMATION
  Report Type: Other
  Country: US (occurrence: US)
  Receive Date: 20220401
  Receipt Date: 20220831
  Transmission Date: 20221027
  Serious: Yes (Other)
  Sender: FDA-Public Use
  Company Number: US-ROCHE-2582124

PATIENT
  Sex: Male

DRUGS (4)
  1. ACTEMRA [Suspect]
     Active Substance: TOCILIZUMAB
     Indication: Giant cell arteritis
     Dosage: INJECT 162MG SUBCUTANEOUSLY EVERY WEEK ONGOING: YES
     Route: 058
  2. ACTEMRA [Suspect]
     Active Substance: TOCILIZUMAB
     Indication: Rheumatoid arthritis
  3. ACTEMRA [Suspect]
     Active Substance: TOCILIZUMAB
     Indication: Giant cell arteritis
     Dosage: (STRENGTH: 162 MG/0.9 ML PFS), INJECT 0.9 ML UNDER SKIN EVERY 7 DAYS
     Route: 058
     Dates: start: 20191219
  4. ACTEMRA [Suspect]
     Active Substance: TOCILIZUMAB
     Indication: Rheumatoid arthritis

REACTIONS (14)
  - Blindness [Unknown]
  - Visual impairment [Not Recovered/Not Resolved]
  - Eye discharge [Unknown]
  - Eyelid margin crusting [Unknown]
  - Eye irritation [Unknown]
  - Lacrimation increased [Unknown]
  - Weight increased [Unknown]
  - Headache [Unknown]
  - COVID-19 [Unknown]
  - Visual impairment [Unknown]
  - Wrong technique in product usage process [Unknown]
  - Eye pain [Unknown]
  - Asthenia [Unknown]
  - Illness [Unknown]
